FAERS Safety Report 13532614 (Version 4)
Quarter: 2017Q4

REPORT INFORMATION
  Report Type: Report from Study
  Country: CA (occurrence: CA)
  Receive Date: 20170510
  Receipt Date: 20171002
  Transmission Date: 20180320
  Serious: Yes (Death, Hospitalization, Other)
  Sender: FDA-Public Use
  Company Number: CA-TOLMAR, INC.-2017CA005789

PATIENT

DRUGS (11)
  1. ELIGARD [Suspect]
     Active Substance: LEUPROLIDE ACETATE
     Indication: PROSTATE CANCER
     Dosage: 30 MG, EVERY 4 MONTHS
     Route: 058
     Dates: start: 20130610, end: 20170503
  2. DILAUDID [Concomitant]
     Active Substance: HYDROMORPHONE HYDROCHLORIDE
  3. MEROPENEM. [Concomitant]
     Active Substance: MEROPENEM
  4. LACTULOSE. [Concomitant]
     Active Substance: LACTULOSE
  5. BISACODYL. [Concomitant]
     Active Substance: BISACODYL
  6. VENTOLIN [Concomitant]
     Active Substance: ALBUTEROL SULFATE
  7. CLOTRIMAZOLE. [Concomitant]
     Active Substance: CLOTRIMAZOLE
  8. TAXOTERE [Concomitant]
     Active Substance: DOCETAXEL
  9. ABIRATERONE [Concomitant]
     Active Substance: ABIRATERONE
  10. ATROVENT [Concomitant]
     Active Substance: IPRATROPIUM BROMIDE
  11. SENNA                              /00142201/ [Concomitant]
     Active Substance: SENNA LEAF

REACTIONS (5)
  - Pleural effusion [Unknown]
  - Prostate cancer [Fatal]
  - Metastases to liver [Unknown]
  - Renal disorder [Recovering/Resolving]
  - Urosepsis [Fatal]
